FAERS Safety Report 18980844 (Version 1)
Quarter: 2021Q1

REPORT INFORMATION
  Report Type: Report from Study
  Country: DE (occurrence: DE)
  Receive Date: 20210308
  Receipt Date: 20210308
  Transmission Date: 20210420
  Serious: No
  Sender: FDA-Public Use
  Company Number: DE-GW PHARMA-202102DEGW00834

PATIENT

DRUGS (2)
  1. EPIDYOLEX (CANNABIDIOL) IN GERMAN CLINICAL PRACTICE [Suspect]
     Active Substance: CANNABIDIOL
     Indication: LENNOX-GASTAUT SYNDROME
     Dosage: UNK
     Route: 048
     Dates: start: 202009, end: 2021
  2. EPIDYOLEX (CANNABIDIOL) IN GERMAN CLINICAL PRACTICE [Suspect]
     Active Substance: CANNABIDIOL
     Dosage: 10 MILLIGRAM/KILOGRAM, BID
     Route: 048
     Dates: start: 2021

REACTIONS (2)
  - Atonic seizures [Unknown]
  - Hepatic enzyme increased [Unknown]

NARRATIVE: CASE EVENT DATE: 2021
